FAERS Safety Report 21826016 (Version 1)
Quarter: 2023Q1

REPORT INFORMATION
  Report Type: Report from Study
  Country: EG (occurrence: EG)
  Receive Date: 20230106
  Receipt Date: 20230106
  Transmission Date: 20230417
  Serious: Yes (Other)
  Sender: FDA-Public Use
  Company Number: EG-002147023-NVSC2022EG219726

PATIENT
  Age: 74 Year
  Sex: Female

DRUGS (9)
  1. ENTRESTO [Suspect]
     Active Substance: SACUBITRIL\VALSARTAN
     Indication: Cardiac failure
     Dosage: 0.5 DOSAGE FORM, QD (100MG HALF TABLET ONCE IN THE MORNING TILL 3 MONTHS AGO)
     Route: 048
     Dates: start: 20220101
  2. ENTRESTO [Suspect]
     Active Substance: SACUBITRIL\VALSARTAN
     Indication: Ejection fraction abnormal
     Dosage: 0.5 DOSAGE FORM, BID (100MG HALF TABLET TWICE DAILY FROM 3 MONTHS AGO TILL ONGOING)
     Route: 048
  3. CHOLEROSE [Concomitant]
     Indication: Lipids abnormal
     Dosage: 20 MG, QD (AT NIGHT)
     Route: 065
     Dates: start: 20221205
  4. BORGAVIX [Concomitant]
     Indication: Anticoagulant therapy
     Dosage: UNK, QD (AT MORNING)
     Route: 065
     Dates: start: 20221205
  5. LANOXIN [Concomitant]
     Active Substance: DIGOXIN
     Indication: Product used for unknown indication
     Dosage: 0.5 DOSAGE FORM, QD (HALF TABLET IN THE MORNING)
     Route: 065
     Dates: start: 20221205
  6. BISOPROLOL [Concomitant]
     Active Substance: BISOPROLOL
     Indication: Product used for unknown indication
     Dosage: UNK, QD (IN THE MORNING)
     Route: 065
     Dates: start: 20221205
  7. GLICLAZIDE [Concomitant]
     Active Substance: GLICLAZIDE
     Indication: Diabetes mellitus
     Dosage: UNK, QD (IN THE MORNING)
     Route: 065
     Dates: start: 20221205
  8. FORADIL [Concomitant]
     Active Substance: FORMOTEROL FUMARATE
     Indication: Product used for unknown indication
     Dosage: UNK, BID (MORNING AND NIGHT)
     Route: 065
     Dates: start: 20221205
  9. ESOMELODAN [Concomitant]
     Indication: Product used for unknown indication
     Dosage: UNK, BID (MORNING AND NIGHT)
     Route: 065
     Dates: start: 20221205

REACTIONS (8)
  - Loss of consciousness [Recovered/Resolved]
  - Heart rate decreased [Recovered/Resolved]
  - Gait inability [Recovered/Resolved]
  - Dizziness [Recovering/Resolving]
  - Hypotension [Recovered/Resolved]
  - Prescribed underdose [Unknown]
  - Product use issue [Unknown]
  - Wrong technique in product usage process [Unknown]

NARRATIVE: CASE EVENT DATE: 20220101
